FAERS Safety Report 18874998 (Version 2)
Quarter: 2025Q1

REPORT INFORMATION
  Report Type: Spontaneous
  Country: IT (occurrence: IT)
  Receive Date: 20210211
  Receipt Date: 20250114
  Transmission Date: 20250409
  Serious: Yes (Other)
  Sender: EMD SERONO INC
  Company Number: IT-MERCK HEALTHCARE KGAA-9218220

PATIENT
  Age: 25 Year
  Sex: Male

DRUGS (7)
  1. GLUCOPHAGE [Suspect]
     Active Substance: METFORMIN HYDROCHLORIDE
     Indication: Intentional self-injury
     Dates: start: 20210124, end: 20210124
  2. VALIUM [Suspect]
     Active Substance: DIAZEPAM
     Indication: Intentional self-injury
     Dates: start: 20210124, end: 20210124
  3. RAMIPRIL [Suspect]
     Active Substance: RAMIPRIL
     Indication: Intentional self-injury
     Dates: start: 20210124, end: 20210124
  4. BISOPROLOL FUMARATE\HYDROCHLOROTHIAZIDE [Suspect]
     Active Substance: BISOPROLOL FUMARATE\HYDROCHLOROTHIAZIDE
     Indication: Product used for unknown indication
  5. VALSARTAN AND HYDROCHLOROTHIAZIDE [Suspect]
     Active Substance: HYDROCHLOROTHIAZIDE\VALSARTAN
     Indication: Intentional self-injury
     Dates: start: 20210124, end: 20210124
  6. FERROUS SULFATE [Suspect]
     Active Substance: FERROUS SULFATE
     Indication: Intentional self-injury
     Dates: start: 20210124, end: 20210124
  7. HALOPERIDOL [Suspect]
     Active Substance: HALOPERIDOL
     Indication: Intentional self-injury
     Dates: start: 20210124, end: 20210124

REACTIONS (3)
  - Intentional self-injury [Unknown]
  - Drug abuse [Unknown]
  - No adverse event [Unknown]

NARRATIVE: CASE EVENT DATE: 20210124
